FAERS Safety Report 23243422 (Version 1)
Quarter: 2023Q4

REPORT INFORMATION
  Report Type: Spontaneous
  Country: CN (occurrence: CN)
  Receive Date: 20231130
  Receipt Date: 20231130
  Transmission Date: 20240110
  Serious: Yes (Hospitalization, Other)
  Sender: FDA-Public Use
  Company Number: None

PATIENT
  Age: 69 Year
  Sex: Female
  Weight: 65 kg

DRUGS (4)
  1. CYCLOPHOSPHAMIDE [Suspect]
     Active Substance: CYCLOPHOSPHAMIDE
     Indication: Breast cancer female
     Dosage: 0.85 G (500 MG/M2), ONE TIME IN ONE DAY, DILUTED WITH 100 ML OF SODIUM CHLORIDE, REGIMEN COMBINED WI
     Route: 041
     Dates: start: 20231020, end: 20231020
  2. CYCLOPHOSPHAMIDE [Suspect]
     Active Substance: CYCLOPHOSPHAMIDE
     Indication: Chemotherapy
  3. DOCETAXEL [Suspect]
     Active Substance: DOCETAXEL\DOCETAXEL ANHYDROUS
     Indication: Breast cancer female
     Dosage: 120 MG, D1, REGIMEN COMBINED WITH CHEMOTHERAPY FOR ONE COURSE
     Route: 065
     Dates: start: 20231020
  4. SODIUM CHLORIDE [Suspect]
     Active Substance: SODIUM CHLORIDE
     Indication: Medication dilution
     Dosage: 100 ML, ONE TIME IN ONE DAY, USED TO DILUTE 0.85 G OF CYCLOPHOSPHAMIDE
     Route: 041
     Dates: start: 20231020, end: 20231020

REACTIONS (2)
  - Gastrointestinal disorder [Recovering/Resolving]
  - Myelosuppression [Recovering/Resolving]

NARRATIVE: CASE EVENT DATE: 20231027
